FAERS Safety Report 14883276 (Version 4)
Quarter: 2020Q2

REPORT INFORMATION
  Report Type: Spontaneous
  Country: US (occurrence: US)
  Receive Date: 20180511
  Receipt Date: 20200422
  Transmission Date: 20200713
  Serious: Yes (Other)
  Sender: FDA-Public Use
  Company Number: US-ELI_LILLY_AND_COMPANY-US201805000806

PATIENT
  Age: 53 Year
  Sex: Male

DRUGS (6)
  1. CIALIS [Suspect]
     Active Substance: TADALAFIL
     Dosage: UNK UNK, UNKNOWN
     Route: 065
     Dates: end: 20131220
  2. CIALIS [Suspect]
     Active Substance: TADALAFIL
     Dosage: 5 MG, WEEKLY (1/W)
     Route: 065
     Dates: start: 20101124, end: 20131120
  3. CIALIS [Suspect]
     Active Substance: TADALAFIL
     Dosage: 2.5 MG, WEEKLY (1/W)
     Route: 065
     Dates: start: 20100129, end: 20100807
  4. LEVITRA [Concomitant]
     Active Substance: VARDENAFIL HYDROCHLORIDE
     Indication: ERECTILE DYSFUNCTION
     Dosage: 20 MG, WEEKLY (1/W)
     Dates: start: 20091216, end: 20100117
  5. CIALIS [Suspect]
     Active Substance: TADALAFIL
     Indication: PRODUCT USED FOR UNKNOWN INDICATION
     Dosage: 2.5 MG, WEEKLY (1/W)
     Route: 065
     Dates: start: 20080831, end: 20091013
  6. VIAGRA [Suspect]
     Active Substance: SILDENAFIL CITRATE
     Indication: PRODUCT USED FOR UNKNOWN INDICATION
     Dosage: 50 MG, UNKNOWN
     Route: 065
     Dates: start: 20110921, end: 20111121

REACTIONS (1)
  - Malignant melanoma stage II [Unknown]

NARRATIVE: CASE EVENT DATE: 20100525
